FAERS Safety Report 20954325 (Version 1)
Quarter: 2022Q2

REPORT INFORMATION
  Report Type: Spontaneous
  Country: US (occurrence: US)
  Receive Date: 20220614
  Receipt Date: 20220614
  Transmission Date: 20220720
  Serious: No
  Sender: FDA-Public Use
  Company Number: US-ORGANON-O2206USA001135

PATIENT
  Age: 70 Year
  Sex: Male

DRUGS (7)
  1. PROSCAR [Interacting]
     Active Substance: FINASTERIDE
     Dosage: UNK
     Route: 048
  2. NIRMATRELVIR\RITONAVIR [Interacting]
     Active Substance: NIRMATRELVIR\RITONAVIR
     Indication: COVID-19
     Dosage: 300 MG NIRMATRELVIR (TWO 150 MG TABLETS) WITH 100 MG RITONAVIR (ONE 100 MG TABLET)
     Route: 048
     Dates: start: 20220606
  3. PROPRANOLOL [Interacting]
     Active Substance: PROPRANOLOL HYDROCHLORIDE
     Dosage: UNK
  4. OMEPRAZOLE [Interacting]
     Active Substance: OMEPRAZOLE
     Dosage: UNK
  5. DIAZEPAM [Interacting]
     Active Substance: DIAZEPAM
     Dosage: UNK
  6. TERAZOSIN [Concomitant]
     Active Substance: TERAZOSIN HYDROCHLORIDE
     Dosage: UNK
  7. PRAVASTATIN [Concomitant]
     Active Substance: PRAVASTATIN
     Dosage: UNK

REACTIONS (1)
  - Drug interaction [Unknown]

NARRATIVE: CASE EVENT DATE: 20220606
